FAERS Safety Report 10926869 (Version 1)
Quarter: 2015Q1

REPORT INFORMATION
  Report Type: Spontaneous
  Country: US (occurrence: None)
  Receive Date: 20150212
  Receipt Date: 20150212
  Transmission Date: 20150721
  Serious: No
  Sender: FDA-Public Use
  Company Number: TPA2011A08222

PATIENT
  Sex: Male

DRUGS (3)
  1. COLCHICINE. [Concomitant]
     Active Substance: COLCHICINE
  2. PROBENECID. [Concomitant]
     Active Substance: PROBENECID
  3. ULORIC [Suspect]
     Active Substance: FEBUXOSTAT
     Indication: BLOOD URIC ACID INCREASED
     Dates: start: 2011

REACTIONS (9)
  - Confusional state [None]
  - Chromaturia [None]
  - Fatigue [None]
  - Pollakiuria [None]
  - Dyspnoea [None]
  - Pain in extremity [None]
  - Dizziness [None]
  - Tremor [None]
  - Pruritus [None]
